FAERS Safety Report 5760971-8 (Version None)
Quarter: 2008Q2

REPORT INFORMATION
  Report Type: 
  Country: None (occurrence: None)
  Receive Date: 20080606
  Receipt Date: 20071001
  Transmission Date: 20081010
  Serious: No
  Sender: FDA-Public Use
  Company Number: US-ASTRAZENECA-2007UW22876

PATIENT
  Age: 83 Year
  Sex: Female
  Weight: 71.7 kg

DRUGS (1)
  1. PRILOSEC [Suspect]
     Route: 048

REACTIONS (3)
  - CHEST PAIN [None]
  - DIZZINESS [None]
  - PARALYSIS [None]
